FAERS Safety Report 8594863-6 (Version None)
Quarter: 2012Q3

REPORT INFORMATION
  Report Type: 
  Country: None (occurrence: None)
  Receive Date: 20120815
  Receipt Date: 20120806
  Transmission Date: 20120928
  Serious: Yes (Death, Hospitalization, Other)
  Sender: FDA-Public Use
  Company Number: JP-MPIJNJ-2012-03337

PATIENT

DRUGS (4)
  1. VELCADE [Suspect]
     Indication: LEUKAEMIA PLASMACYTIC
     Dosage: 1.3 MG, UNK
     Route: 042
     Dates: start: 20120420, end: 20120430
  2. LACTULOSE [Concomitant]
     Indication: CONSTIPATION
     Dosage: 60 ML, UNK
     Route: 048
     Dates: start: 20120428, end: 20120521
  3. REBAMIPIDE [Concomitant]
     Indication: GASTRIC MUCOSAL LESION
     Dosage: UNK
     Route: 048
     Dates: start: 20120428, end: 20120501
  4. DEXAMETHASONE [Suspect]
     Indication: LEUKAEMIA PLASMACYTIC
     Dosage: UNK
     Route: 042
     Dates: start: 20120417, end: 20120513

REACTIONS (8)
  - OFF LABEL USE [None]
  - CARDIAC FAILURE [None]
  - DUODENAL ULCER HAEMORRHAGE [None]
  - SHOCK HAEMORRHAGIC [None]
  - VENTRICULAR FIBRILLATION [None]
  - CEREBRAL INFARCTION [None]
  - LUNG DISORDER [None]
  - MYOCARDIAL HAEMORRHAGE [None]
